FAERS Safety Report 25388257 (Version 2)
Quarter: 2025Q3

REPORT INFORMATION
  Report Type: Spontaneous
  Country: US (occurrence: US)
  Receive Date: 20250603
  Receipt Date: 20250714
  Transmission Date: 20251020
  Serious: Yes (Other)
  Sender: CSL BEHRING
  Company Number: US-BEH-2025207943

PATIENT
  Age: 22 Year
  Sex: Male

DRUGS (2)
  1. HUMATE-P [Suspect]
     Active Substance: HUMAN COAGULATION FACTOR VIII/VON WILLEBRAND FACTOR COMPLEX
     Indication: Von Willebrand^s disease
     Dosage: 4500 IU, BIW
     Route: 042
     Dates: start: 202404
  2. HUMATE-P [Suspect]
     Active Substance: HUMAN COAGULATION FACTOR VIII/VON WILLEBRAND FACTOR COMPLEX
     Indication: Prophylaxis
     Route: 042
     Dates: start: 202404

REACTIONS (7)
  - Haemarthrosis [Unknown]
  - Haemarthrosis [Unknown]
  - Muscle haemorrhage [Unknown]
  - Wound haemorrhage [Unknown]
  - Haemorrhoidal haemorrhage [Unknown]
  - Fall [Unknown]
  - Accident at work [Unknown]

NARRATIVE: CASE EVENT DATE: 20250522
